FAERS Safety Report 20504779 (Version 1)
Quarter: 2022Q1

REPORT INFORMATION
  Report Type: Report from Study
  Country: US (occurrence: US)
  Receive Date: 20220223
  Receipt Date: 20220223
  Transmission Date: 20220423
  Serious: Yes (Hospitalization)
  Sender: FDA-Public Use
  Company Number: US-TAKEDA-2022TUS012213

PATIENT
  Sex: Male

DRUGS (4)
  1. TEDUGLUTIDE [Suspect]
     Active Substance: TEDUGLUTIDE
     Indication: Gastrooesophageal reflux disease
     Dosage: 4.3 MILLIGRAM, QD
     Route: 058
     Dates: start: 20220104
  2. TEDUGLUTIDE [Suspect]
     Active Substance: TEDUGLUTIDE
     Indication: Gastrooesophageal reflux disease
     Dosage: 4.3 MILLIGRAM, QD
     Route: 058
     Dates: start: 20220104
  3. TEDUGLUTIDE [Suspect]
     Active Substance: TEDUGLUTIDE
     Indication: Gastrooesophageal reflux disease
     Dosage: 4.3 MILLIGRAM, QD
     Route: 058
     Dates: start: 20220104
  4. TEDUGLUTIDE [Suspect]
     Active Substance: TEDUGLUTIDE
     Indication: Gastrooesophageal reflux disease
     Dosage: 4.3 MILLIGRAM, QD
     Route: 058
     Dates: start: 20220104

REACTIONS (1)
  - Hospitalisation [Unknown]
